FAERS Safety Report 8151685-8 (Version None)
Quarter: 2012Q1

REPORT INFORMATION
  Report Type: 
  Country: None (occurrence: None)
  Receive Date: 20120221
  Receipt Date: 20120208
  Transmission Date: 20120608
  Serious: Yes (Other)
  Sender: FDA-Public Use
  Company Number: BR-AMGEN-BRASP2012009333

PATIENT
  Age: 68 Year
  Sex: Female
  Weight: 52 kg

DRUGS (6)
  1. ENBREL [Suspect]
     Indication: RHEUMATOID ARTHRITIS
     Dosage: 50 MG, ONCE WEEKLY
     Route: 058
     Dates: start: 20110101
  2. METHOTREXATE [Concomitant]
     Dosage: 75 MG, UNK
  3. CALCIUM CARBONATE [Concomitant]
     Dosage: 600 MG, 2X/DAY
  4. ALENDRONATE SODIUM [Concomitant]
     Indication: OSTEOPOROSIS
     Dosage: 70 MG, ONCE WEEKLY
  5. PREDNISONE [Concomitant]
     Dosage: 5 MG, 2X/WEEK
  6. OLMESARTAN MEDOXOMIL AND HYDROCHLOROTHIZIDE [Concomitant]
     Indication: BLOOD PRESSURE
     Dosage: 40 MG, 1X/DAY

REACTIONS (8)
  - RHEUMATOID ARTHRITIS [None]
  - LOWER LIMB FRACTURE [None]
  - ACCIDENT [None]
  - INJECTION SITE NODULE [None]
  - WRONG TECHNIQUE IN DRUG USAGE PROCESS [None]
  - INJECTION SITE PAIN [None]
  - FOOT FRACTURE [None]
  - INCORRECT STORAGE OF DRUG [None]
